FAERS Safety Report 5350708-9 (Version None)
Quarter: 2007Q2

REPORT INFORMATION
  Report Type: 
  Country: None (occurrence: None)
  Receive Date: 20070608
  Receipt Date: 20070606
  Transmission Date: 20071010
  Serious: Yes (Hospitalization, Other)
  Sender: FDA-Public Use
  Company Number: US-ASTRAZENECA-2007UW11088

PATIENT
  Age: 545 Month
  Sex: Male
  Weight: 99.1 kg

DRUGS (6)
  1. SEROQUEL [Suspect]
     Indication: PSYCHOTIC DISORDER
     Route: 048
     Dates: start: 20060101, end: 20070101
  2. SEROQUEL [Suspect]
     Route: 048
     Dates: start: 20070101
  3. LITHIUM CARBONATE [Concomitant]
     Indication: DEPRESSION
     Dates: start: 20061221
  4. CYMBALTA [Concomitant]
     Indication: DEPRESSION
     Dates: start: 20061117
  5. KLONOPIN [Concomitant]
     Indication: DEPRESSION
     Dates: start: 20030203, end: 20070101
  6. KLONOPIN [Concomitant]
     Dates: start: 20070101

REACTIONS (3)
  - AKATHISIA [None]
  - ANXIETY [None]
  - SUICIDAL IDEATION [None]
